FAERS Safety Report 12714286 (Version 2)
Quarter: 2019Q2

REPORT INFORMATION
  Report Type: Spontaneous
  Country: US (occurrence: US)
  Receive Date: 20160905
  Receipt Date: 20190418
  Transmission Date: 20190711
  Serious: No
  Sender: FDA-Public Use
  Company Number: US-PFIZER INC-2015158926

PATIENT
  Age: 84 Year
  Sex: Female

DRUGS (7)
  1. BENZYLPENICILLIN POTASSIUM [Suspect]
     Active Substance: PENICILLIN G POTASSIUM
     Dosage: UNK
  2. BLEPH-10 [Suspect]
     Active Substance: SULFACETAMIDE SODIUM
     Dosage: UNK
  3. BACTRIM [Suspect]
     Active Substance: SULFAMETHOXAZOLE\TRIMETHOPRIM
     Dosage: 1 DF, UNK (SULFAMETHOXAZOLE-400 MG/TRIMETHOPRIM-80 MG)
  4. IODINE. [Suspect]
     Active Substance: IODINE
     Dosage: UNK
  5. IODINE TINCTURE [Suspect]
     Active Substance: IODINE
     Dosage: UNK
  6. NIASPAN [Suspect]
     Active Substance: NIACIN
     Dosage: UNK
  7. ZOCOR [Suspect]
     Active Substance: SIMVASTATIN
     Dosage: UNK

REACTIONS (1)
  - Drug hypersensitivity [Unknown]
